FAERS Safety Report 5514368-6 (Version None)
Quarter: 2007Q4

REPORT INFORMATION
  Report Type: 
  Country: None (occurrence: None)
  Receive Date: 20071113
  Receipt Date: 20070917
  Transmission Date: 20080405
  Serious: No
  Sender: FDA-Public Use
  Company Number: A0649107A

PATIENT
  Age: 92 Year
  Sex: Female
  Weight: 51.8 kg

DRUGS (7)
  1. COREG [Suspect]
     Indication: ATRIAL FIBRILLATION
     Dosage: 12.5MG TWICE PER DAY
     Route: 048
     Dates: start: 20070312, end: 20070326
  2. LOPRESSOR [Concomitant]
     Dosage: 100MG TWICE PER DAY
     Dates: end: 20070312
  3. DIGOXIN [Concomitant]
     Dosage: .125MG PER DAY
  4. PREDNISONE TAB [Concomitant]
     Dosage: 10MG PER DAY
  5. MINITRAN [Concomitant]
     Dosage: 4MGH SEE DOSAGE TEXT
     Route: 061
  6. NITROGLYCERIN [Concomitant]
     Route: 060
  7. PERCOCET [Concomitant]
     Indication: BACK PAIN

REACTIONS (9)
  - ANXIETY [None]
  - DISORIENTATION [None]
  - DRUG INEFFECTIVE [None]
  - HEART RATE IRREGULAR [None]
  - NAUSEA [None]
  - NERVOUSNESS [None]
  - OEDEMA PERIPHERAL [None]
  - VISION BLURRED [None]
  - VISUAL DISTURBANCE [None]
